FAERS Safety Report 5212727-2 (Version None)
Quarter: 2006Q4

REPORT INFORMATION
  Report Type: 
  Country: None (occurrence: None)
  Receive Date: 20061115
  Receipt Date: 20060810
  Transmission Date: 20070319
  Serious: No
  Sender: FDA-Public Use
  Company Number: 200615100BWH

PATIENT
  Sex: Female

DRUGS (2)
  1. NEXAVAR [Suspect]
     Indication: DRUG USE FOR UNKNOWN INDICATION
     Dosage: NI, BID; ORAL
     Route: 048
     Dates: start: 20060801
  2. LAXATIVE [Concomitant]

REACTIONS (2)
  - NAUSEA [None]
  - VOMITING [None]
